FAERS Safety Report 9962047 (Version 1)
Quarter: 2014Q1

REPORT INFORMATION
  Report Type: Spontaneous
  Country: US (occurrence: US)
  Receive Date: 20140305
  Receipt Date: 20140305
  Transmission Date: 20141002
  Serious: No
  Sender: FDA-Public Use
  Company Number: US-ABBVIE-13P-163-1113661-00

PATIENT
  Sex: Female
  Weight: 87.62 kg

DRUGS (6)
  1. HUMIRA [Suspect]
     Indication: RHEUMATOID ARTHRITIS
     Route: 058
     Dates: start: 2012
  2. CITALOPRAM [Concomitant]
     Indication: DEPRESSION
  3. ESTRADIOL [Concomitant]
     Indication: HYSTERECTOMY
  4. DICLOFENAC [Concomitant]
     Indication: RHEUMATOID ARTHRITIS
  5. OMEPRAZOLE [Concomitant]
     Indication: GASTROOESOPHAGEAL REFLUX DISEASE
  6. VITAMIN D NOS [Concomitant]
     Indication: RHEUMATOID ARTHRITIS

REACTIONS (2)
  - Injection site urticaria [Recovered/Resolved]
  - Injection site pain [Not Recovered/Not Resolved]
